FAERS Safety Report 9669616 (Version 2)
Quarter: 2013Q4

REPORT INFORMATION
  Report Type: Report from Study
  Country: CN (occurrence: CN)
  Receive Date: 20131105
  Receipt Date: 20131105
  Transmission Date: 20140711
  Serious: Yes (Hospitalization)
  Sender: FDA-Public Use
  Company Number: CN-ROCHE-1156475

PATIENT
  Age: 46 Year
  Sex: Female
  Weight: 52 kg

DRUGS (1)
  1. PEG-INTERFERON ALFA 2A [Suspect]
     Indication: CHRONIC HEPATITIS B
     Dosage: LAST DOSE PRIOR TO AE 05-JUL-2012
     Route: 058
     Dates: start: 20100902

REACTIONS (4)
  - Hepatic function abnormal [Recovered/Resolved]
  - Jaundice [Recovered/Resolved]
  - Ascites [Recovered/Resolved]
  - Alpha 1 foetoprotein increased [Recovered/Resolved]
